FAERS Safety Report 8611710 (Version 5)
Quarter: 2015Q2

REPORT INFORMATION
  Report Type: Spontaneous
  Country: US (occurrence: US)
  Receive Date: 20120613
  Receipt Date: 20150618
  Transmission Date: 20150821
  Serious: Yes (Death, Hospitalization, Disabling, Other)
  Sender: FDA-Public Use
  Company Number: US-SANOFI-AVENTIS-2012SA041760

PATIENT
  Age: 4 Year
  Sex: Male
  Weight: 12.9 kg

DRUGS (15)
  1. PLAVIX [Suspect]
     Active Substance: CLOPIDOGREL BISULFATE
     Indication: STENT PLACEMENT
     Route: 048
     Dates: start: 20120120, end: 20120316
  2. ASPIRIN. [Suspect]
     Active Substance: ASPIRIN
     Route: 065
     Dates: start: 201201, end: 201203
  3. TOBRAMYCIN. [Concomitant]
     Active Substance: TOBRAMYCIN
  4. AUGMENTIN [Concomitant]
     Active Substance: AMOXICILLIN\CLAVULANATE POTASSIUM
     Dosage: 300 MG
     Route: 048
  5. GAMUNEX [Concomitant]
     Active Substance: HUMAN IMMUNOGLOBULIN G
  6. SYNTHROID [Concomitant]
     Active Substance: LEVOTHYROXINE SODIUM
  7. NOVOLOG [Concomitant]
     Active Substance: INSULIN ASPART
  8. S-ADENOSYLMETHIONINE SULFATE P-TOLUENESULFONATE [Concomitant]
     Active Substance: ADEMETIONINE SULFATE TOSILATE
     Dosage: 200 MG
     Route: 048
  9. FLUCONAZOLE. [Concomitant]
     Active Substance: FLUCONAZOLE
     Dosage: 80 MG
     Route: 048
  10. KEPPRA [Concomitant]
     Active Substance: LEVETIRACETAM
     Dosage: 150 MG
     Route: 048
  11. VITAMIN D/CALCIUM [Concomitant]
     Dosage: 600 MG/250 MG
  12. LEVOTHYROXINE [Concomitant]
     Active Substance: LEVOTHYROXINE
     Dosage: 62.5 MCG QAM
     Route: 048
  13. XOPENEX [Concomitant]
     Active Substance: LEVALBUTEROL HYDROCHLORIDE
  14. VANCOMYCIN [Concomitant]
     Active Substance: VANCOMYCIN
     Dosage: 150 MG Q6
     Route: 048
  15. PREVACID [Concomitant]
     Active Substance: LANSOPRAZOLE

REACTIONS (12)
  - Pain [Not Recovered/Not Resolved]
  - Anhedonia [Not Recovered/Not Resolved]
  - Intracranial aneurysm [Fatal]
  - Economic problem [Not Recovered/Not Resolved]
  - Multiple injuries [Not Recovered/Not Resolved]
  - Deformity [Not Recovered/Not Resolved]
  - Loss of employment [Not Recovered/Not Resolved]
  - Cerebral haemorrhage [Fatal]
  - Psychological trauma [Not Recovered/Not Resolved]
  - Physical disability [Not Recovered/Not Resolved]
  - Tension [Not Recovered/Not Resolved]
  - Social problem [Not Recovered/Not Resolved]

NARRATIVE: CASE EVENT DATE: 20120131
